FAERS Safety Report 14658884 (Version 2)
Quarter: 2018Q2

REPORT INFORMATION
  Report Type: Spontaneous
  Country: CH (occurrence: CH)
  Receive Date: 20180320
  Receipt Date: 20180516
  Transmission Date: 20180711
  Serious: Yes (Hospitalization)
  Sender: FDA-Public Use
  Company Number: CH-US WORLDMEDS, LLC-E2B_00002709

PATIENT
  Age: 87 Year
  Sex: Female

DRUGS (7)
  1. LEVODOPA/CARBIDOPA SANDOZ [Concomitant]
  2. XADAGO [Suspect]
     Active Substance: SAFINAMIDE MESYLATE
     Dates: start: 20160620, end: 20170914
  3. CARBIDOPA/LEVODOPA [Concomitant]
     Active Substance: CARBIDOPA\LEVODOPA
  4. NEUPRO [Concomitant]
     Active Substance: ROTIGOTINE
     Route: 062
  5. PROPRANOLOL [Concomitant]
     Active Substance: PROPRANOLOL HYDROCHLORIDE
  6. CALCIMAGON D3 [Concomitant]
     Active Substance: CALCIUM\CHOLECALCIFEROL
  7. XADAGO [Suspect]
     Active Substance: SAFINAMIDE MESYLATE
     Indication: PARKINSON^S DISEASE
     Route: 048
     Dates: start: 20160519, end: 20160619

REACTIONS (3)
  - Visual impairment [Not Recovered/Not Resolved]
  - Papilloedema [Recovered/Resolved]
  - Optic neuritis [Not Recovered/Not Resolved]

NARRATIVE: CASE EVENT DATE: 201709
